FAERS Safety Report 13636153 (Version 1)
Quarter: 2017Q2

REPORT INFORMATION
  Report Type: Report from Study
  Country: US (occurrence: US)
  Receive Date: 20170609
  Receipt Date: 20170609
  Transmission Date: 20170830
  Serious: Yes (Hospitalization, Other)
  Sender: FDA-Public Use
  Company Number: US-GILEAD-2017-0276809

PATIENT
  Age: 75 Year
  Sex: Female

DRUGS (1)
  1. AMBRISENTAN [Suspect]
     Active Substance: AMBRISENTAN
     Indication: PRODUCT USED FOR UNKNOWN INDICATION
     Dosage: 10 MG, UNK
     Route: 065
     Dates: start: 20130620

REACTIONS (10)
  - Syncope [Unknown]
  - Vocal cord disorder [Unknown]
  - Gastric haemorrhage [Unknown]
  - Asthenia [Unknown]
  - Speech disorder [Unknown]
  - Malaise [Unknown]
  - Cough [Unknown]
  - Gait disturbance [Unknown]
  - Volume blood decreased [Unknown]
  - Anaesthetic complication [Unknown]

NARRATIVE: CASE EVENT DATE: 2016
